FAERS Safety Report 10095318 (Version 2)
Quarter: 2014Q2

REPORT INFORMATION
  Report Type: Spontaneous
  Country: US (occurrence: US)
  Receive Date: 20140422
  Receipt Date: 20140422
  Transmission Date: 20141212
  Serious: Yes (Hospitalization)
  Sender: FDA-Public Use
  Company Number: US-GILEAD-2013-0073281

PATIENT
  Age: 83 Year
  Sex: Male

DRUGS (2)
  1. LETAIRIS [Suspect]
     Indication: PULMONARY HYPERTENSION
     Dosage: 5 MG, QD
     Route: 048
     Dates: start: 20121226, end: 20130408
  2. ADCIRCA [Concomitant]
     Indication: COR PULMONALE CHRONIC

REACTIONS (3)
  - Penile oedema [Unknown]
  - Scrotal oedema [Unknown]
  - Oedema peripheral [Unknown]
